FAERS Safety Report 8507815-9 (Version None)
Quarter: 2012Q3

REPORT INFORMATION
  Report Type: 
  Country: None (occurrence: None)
  Receive Date: 20120713
  Receipt Date: 20120710
  Transmission Date: 20120928
  Serious: Yes (Death, Hospitalization)
  Sender: FDA-Public Use
  Company Number: PHHY2012BR059547

PATIENT
  Sex: Male
  Weight: 66 kg

DRUGS (3)
  1. EXELON [Suspect]
     Indication: MEMORY IMPAIRMENT
     Dosage: 4.6 MG (9MG/5CM2) PER DAY
     Route: 062
  2. EXELON [Suspect]
     Dosage: 9.5 MG (18MG/10CM2) PER DAY
     Route: 062
  3. DIOVAN [Suspect]
     Dosage: 2 DF (ONE TAB OF 160 MG IN THE MORNING AND ONE TAB OF 80 MG AT NIGHT),

REACTIONS (6)
  - PNEUMONIA [None]
  - ARRHYTHMIA [None]
  - DEPRESSION [None]
  - GENERAL PHYSICAL HEALTH DETERIORATION [None]
  - CONVULSION [None]
  - MEMORY IMPAIRMENT [None]
